FAERS Safety Report 7016155-9 (Version None)
Quarter: 2010Q3

REPORT INFORMATION
  Report Type: 
  Country: None (occurrence: None)
  Receive Date: 20100927
  Receipt Date: 20100813
  Transmission Date: 20110219
  Serious: Yes (Death, Hospitalization, Other)
  Sender: FDA-Public Use
  Company Number: US-BAXTER-2010BH001593

PATIENT
  Age: 74 Year
  Sex: Female

DRUGS (26)
  1. HEPARIN SODIUM INJECTION [Suspect]
     Indication: HAEMODIALYSIS
     Route: 058
     Dates: start: 20080101, end: 20080102
  2. HEPARIN SODIUM INJECTION [Suspect]
     Route: 058
     Dates: start: 20080116, end: 20080116
  3. HEPARIN SODIUM INJECTION [Suspect]
     Route: 058
     Dates: start: 20080129, end: 20080129
  4. HEPARIN SODIUM INJECTION [Suspect]
     Route: 058
     Dates: start: 20080407, end: 20080410
  5. HEPARIN SODIUM INJECTION [Suspect]
     Route: 058
     Dates: start: 20080201, end: 20080201
  6. HEPARIN SODIUM INJECTION [Suspect]
     Route: 058
     Dates: start: 20080514
  7. HEPARIN SODIUM INJECTION [Suspect]
     Route: 010
     Dates: start: 20080205, end: 20080206
  8. HEPARIN SODIUM INJECTION [Suspect]
     Route: 010
     Dates: start: 20080208, end: 20080208
  9. HEPARIN SODIUM INJECTION [Suspect]
     Route: 010
     Dates: start: 20080212, end: 20080214
  10. HEPARIN SODIUM INJECTION [Suspect]
     Route: 010
     Dates: start: 20080216, end: 20080216
  11. HEPARIN SODIUM INJECTION [Suspect]
     Route: 010
     Dates: start: 20080219, end: 20080219
  12. HEPARIN SODIUM 5,000 UNITS IN DEXTROSE 5% [Suspect]
     Indication: ATRIAL FIBRILLATION
     Route: 042
     Dates: start: 20080104
  13. METOPROLOL TARTRATE [Concomitant]
     Indication: PRODUCT USED FOR UNKNOWN INDICATION
     Route: 065
  14. ASPIRIN [Concomitant]
     Indication: PRODUCT USED FOR UNKNOWN INDICATION
     Route: 048
  15. FENTANYL CITRATE [Concomitant]
     Indication: PRODUCT USED FOR UNKNOWN INDICATION
     Route: 061
  16. ARANESP [Concomitant]
     Indication: PRODUCT USED FOR UNKNOWN INDICATION
     Route: 065
  17. VICODIN [Concomitant]
     Indication: PRODUCT USED FOR UNKNOWN INDICATION
     Route: 048
  18. PRAVASTATIN [Concomitant]
     Indication: PRODUCT USED FOR UNKNOWN INDICATION
     Route: 048
  19. CALCIUM CARBONATE [Concomitant]
     Indication: PRODUCT USED FOR UNKNOWN INDICATION
     Route: 065
  20. SODIUM CHLORIDE 0.9% IN PLASTIC CONTAINER [Concomitant]
     Indication: PRODUCT USED FOR UNKNOWN INDICATION
     Route: 065
  21. HUMULIN 70/30 [Concomitant]
     Indication: DIABETES MELLITUS
     Route: 058
  22. CALCIUM CARBONATE [Concomitant]
     Route: 048
  23. FERROUS SULFATE [Concomitant]
     Indication: PRODUCT USED FOR UNKNOWN INDICATION
     Route: 048
  24. SIMVASTATIN [Concomitant]
     Indication: PRODUCT USED FOR UNKNOWN INDICATION
     Route: 048
  25. MIDODRINE HYDROCHLORIDE [Concomitant]
     Indication: PRODUCT USED FOR UNKNOWN INDICATION
     Route: 065
  26. VANCOMYCIN [Concomitant]
     Indication: PRODUCT USED FOR UNKNOWN INDICATION
     Route: 042

REACTIONS (36)
  - ADRENAL INSUFFICIENCY [None]
  - ANTIBIOTIC RESISTANT STAPHYLOCOCCUS TEST POSITIVE [None]
  - BRADYCARDIA [None]
  - BREAST PAIN [None]
  - CARDIAC ARREST [None]
  - CHEST PAIN [None]
  - COAGULOPATHY [None]
  - DEVICE EXPULSION [None]
  - DYSPHAGIA [None]
  - DYSPNOEA [None]
  - ENTEROCOCCAL INFECTION [None]
  - EPISTAXIS [None]
  - GASTRIC HAEMORRHAGE [None]
  - HAEMATEMESIS [None]
  - HAEMOPTYSIS [None]
  - HEPARIN-INDUCED THROMBOCYTOPENIA [None]
  - HYPOTENSION [None]
  - LETHARGY [None]
  - MALAISE [None]
  - MASTITIS [None]
  - MULTI-ORGAN FAILURE [None]
  - NAUSEA [None]
  - OXYGEN SATURATION DECREASED [None]
  - PYREXIA [None]
  - RASH [None]
  - RESPIRATORY FAILURE [None]
  - SEPSIS [None]
  - SEPTIC SHOCK [None]
  - TACHYCARDIA [None]
  - TACHYPNOEA [None]
  - THROMBOCYTOPENIA [None]
  - TREPONEMA TEST POSITIVE [None]
  - ULCER [None]
  - UNRESPONSIVE TO STIMULI [None]
  - VOMITING [None]
  - WOUND DEHISCENCE [None]
